FAERS Safety Report 6214998-2 (Version None)
Quarter: 2009Q2

REPORT INFORMATION
  Report Type: 
  Country: None (occurrence: None)
  Receive Date: 20090604
  Receipt Date: 20080930
  Transmission Date: 20091009
  Serious: No
  Sender: FDA-Public Use
  Company Number: US-ASTRAZENECA-2008UW11836

PATIENT
  Age: 62 Year
  Sex: Female

DRUGS (2)
  1. PRILOSEC [Suspect]
     Route: 048
  2. PRILOSEC [Suspect]
     Route: 048
     Dates: start: 20080101

REACTIONS (2)
  - BURNING SENSATION [None]
  - DRUG INEFFECTIVE [None]
